FAERS Safety Report 7979565-9 (Version None)
Quarter: 2011Q4

REPORT INFORMATION
  Report Type: 
  Country: None (occurrence: None)
  Receive Date: 20111214
  Receipt Date: 20111206
  Transmission Date: 20120403
  Serious: Yes (Hospitalization, Other)
  Sender: FDA-Public Use
  Company Number: US-ABBOTT-11P-163-0881057-00

PATIENT
  Sex: Male
  Weight: 86.26 kg

DRUGS (7)
  1. CELEBREX [Concomitant]
     Indication: ARTHROPATHY
  2. OMEPRAZOLE [Concomitant]
     Indication: OESOPHAGITIS
  3. ANDROGEL [Suspect]
     Indication: BLOOD TESTOSTERONE DECREASED
     Dosage: 5 GM IN MORNING AND 3.75 GM IN EVENING
     Dates: start: 20080601
  4. LYRICA [Concomitant]
     Indication: NEUROPATHY PERIPHERAL
  5. CRESTOR [Concomitant]
     Indication: LOW DENSITY LIPOPROTEIN INCREASED
  6. CLONEZEMPAM [Concomitant]
     Indication: INSOMNIA
  7. OXYCODONE HCL [Concomitant]
     Indication: PAIN

REACTIONS (4)
  - THROMBOPHLEBITIS [None]
  - ARTHRITIS [None]
  - ACNE [None]
  - DRUG DISPENSING ERROR [None]
